FAERS Safety Report 8862954 (Version 1)
Quarter: 2012Q4

REPORT INFORMATION
  Report Type: 
  Country: US (occurrence: US)
  Receive Date: 20121026
  Receipt Date: 20121026
  Transmission Date: 20130627
  Serious: No
  Sender: FDA-Public Use
  Company Number: US-ASTRAZENECA-2004UW14887

PATIENT
  Sex: Male

DRUGS (9)
  1. CRESTOR [Suspect]
     Indication: BLOOD CHOLESTEROL INCREASED
     Route: 048
  2. PULMICORT [Concomitant]
  3. COMBIVENT [Concomitant]
  4. TENORMIN [Concomitant]
  5. PLAVIX [Concomitant]
  6. HYDROCHLOROTHIAZIDE [Concomitant]
  7. VYTORIN [Concomitant]
  8. BABY ASA [Concomitant]
  9. SIMVASTATIN [Concomitant]

REACTIONS (5)
  - Ill-defined disorder [Unknown]
  - Gait disturbance [None]
  - Myalgia [Recovering/Resolving]
  - Pain in extremity [None]
  - Pain in extremity [None]
